FAERS Safety Report 14351763 (Version 1)
Quarter: 2018Q1

REPORT INFORMATION
  Report Type: Spontaneous
  Country: US (occurrence: US)
  Receive Date: 20180103
  Receipt Date: 20180103
  Transmission Date: 20180509
  Serious: Yes (Hospitalization)
  Sender: FDA-Public Use
  Company Number: None

PATIENT
  Age: 60 Year
  Sex: Male
  Weight: 141.07 kg

DRUGS (1)
  1. METFORMIN [Suspect]
     Active Substance: METFORMIN HYDROCHLORIDE
     Indication: DIABETES MELLITUS
     Route: 048
     Dates: start: 20150626, end: 20170309

REACTIONS (9)
  - Flushing [None]
  - Ear disorder [None]
  - Neck pain [None]
  - Chest pain [None]
  - Back pain [None]
  - Urinary tract infection [None]
  - Blood lactic acid increased [None]
  - Dyspnoea [None]
  - Musculoskeletal pain [None]

NARRATIVE: CASE EVENT DATE: 20170309
